FAERS Safety Report 9293987 (Version 1)
Quarter: 2013Q1

REPORT INFORMATION
  Report Type: Spontaneous
  Country: US (occurrence: None)
  Receive Date: 20121217
  Receipt Date: 20121217
  Transmission Date: 20140127
  Serious: Yes (Hospitalization)
  Sender: FDA-Public Use
  Company Number: PHEH2012US018322

PATIENT
  Age: 58 Year
  Sex: Female

DRUGS (5)
  1. EXFORGE HCT [Suspect]
     Dosage: 1 DF, QD (VALS 320MG, AMIO 25MG, HYDR 10MG)
  2. DALIREST (DALIREST) [Concomitant]
  3. NORVASC (AMLODIPINE BESILATE) [Concomitant]
  4. DULERA (FORMOTEROL FUMARATE, MOMETASONE FUMARATE) INHALER [Concomitant]
  5. CLONIDINE (CLONIDINE) [Concomitant]

REACTIONS (1)
  - Hypertension [None]
